FAERS Safety Report 10446724 (Version 2)
Quarter: 2014Q3

REPORT INFORMATION
  Report Type: Spontaneous
  Country: US (occurrence: None)
  Receive Date: 20140909
  Receipt Date: 20140912
  Transmission Date: 20150326
  Serious: Yes (Death)
  Sender: FDA-Public Use
  Company Number: 2014-US-011013

PATIENT
  Age: 88 Year
  Sex: Female

DRUGS (21)
  1. VITAMIN C [Concomitant]
     Active Substance: ASCORBIC ACID
  2. COGENTIN (BENZATROPINE MESILATE) [Concomitant]
  3. VITAMIN D3 [Concomitant]
     Active Substance: CHOLECALCIFEROL
  4. NORCO (HYDROCODONE, PARACETAMOL) [Concomitant]
  5. ZADITOR (KETOTIFEN FUMARATE) [Concomitant]
  6. COLACE [Concomitant]
     Active Substance: DOCUSATE SODIUM
  7. GLYCOLAX (MACROGOL) [Concomitant]
  8. DEEP SEA PREMIUM SALINE (SODIUM CHLORIDE) [Concomitant]
  9. PRILOSEC (OMEPRAZOLE) [Concomitant]
     Active Substance: OMEPRAZOLE MAGNESIUM
  10. SWEEN (ERGOCALCIFEROL, RETINOL) [Concomitant]
  11. CLOZAPINE. [Suspect]
     Active Substance: CLOZAPINE
     Indication: SCHIZOAFFECTIVE DISORDER
     Route: 048
     Dates: start: 20140501
  12. ASPIRIN (ACETYLSALICYLIC ACID) [Concomitant]
     Active Substance: ASPIRIN
  13. LANOXIN [Concomitant]
     Active Substance: DIGOXIN
  14. TAZTIA (DILTIAZEM HYDROCHLORIDE) [Concomitant]
  15. GLUCOTROLE (GLIPIZIDE) [Concomitant]
  16. HIPREX (METHENAMINE HIPPURATE) [Concomitant]
  17. SYSTANE (MACROGOL, PROPYLENE GLYCOL) [Concomitant]
  18. CYMBALTA [Concomitant]
     Active Substance: DULOXETINE HYDROCHLORIDE
  19. XANAX [Concomitant]
     Active Substance: ALPRAZOLAM
  20. CLEOCIN (CLINDAMYCIN HYDROCHLORIDE) [Concomitant]
  21. MYCOSTATIN (NYSTATIN) [Concomitant]

REACTIONS (5)
  - Oral infection [None]
  - Hypertensive heart disease [None]
  - Cardiovascular disorder [None]
  - Atrial fibrillation [None]
  - Tooth abscess [None]

NARRATIVE: CASE EVENT DATE: 201408
